FAERS Safety Report 9023995 (Version 3)
Quarter: 2013Q1

REPORT INFORMATION
  Report Type: Spontaneous
  Country: US (occurrence: US)
  Receive Date: 20130122
  Receipt Date: 20130306
  Transmission Date: 20140127
  Serious: Yes (Disabling)
  Sender: FDA-Public Use
  Company Number: US-009507513-1301USA009185

PATIENT
  Age: 72 Year
  Sex: Male
  Weight: 86.16 kg

DRUGS (1)
  1. INVANZ [Suspect]
     Indication: ARTHRITIS BACTERIAL
     Dosage: 1 G, QD
     Route: 042

REACTIONS (4)
  - Confusional state [Recovering/Resolving]
  - Impaired driving ability [Recovering/Resolving]
  - Hostility [Recovering/Resolving]
  - Aggression [Recovering/Resolving]
